FAERS Safety Report 24772022 (Version 1)
Quarter: 2024Q4

REPORT INFORMATION
  Report Type: Spontaneous
  Country: US (occurrence: US)
  Receive Date: 20241224
  Receipt Date: 20241224
  Transmission Date: 20250115
  Serious: No
  Sender: SANOFI AVENTIS
  Company Number: US-SANOFI-02344375

PATIENT
  Age: 74 Year
  Sex: Male

DRUGS (1)
  1. LANTUS SOLOSTAR [Suspect]
     Active Substance: INSULIN GLARGINE
     Indication: Type 2 diabetes mellitus
     Dosage: 2 UNITS IN THE MORNING, 6 UNITS AT NIGHT BID AND DRUG TREATMENT DURATION: 2 DAYS
     Route: 065
     Dates: start: 2017

REACTIONS (1)
  - Off label use [Unknown]
